FAERS Safety Report 11822003 (Version 1)
Quarter: 2015Q4

REPORT INFORMATION
  Report Type: Spontaneous
  Country: US (occurrence: US)
  Receive Date: 20151210
  Receipt Date: 20151210
  Transmission Date: 20160305
  Serious: No
  Sender: FDA-Public Use
  Company Number: US-JNJFOC-20150721062

PATIENT
  Sex: Female

DRUGS (2)
  1. PREDNISONE. [Suspect]
     Active Substance: PREDNISONE
     Indication: PRODUCT USED FOR UNKNOWN INDICATION
     Route: 065
  2. IMBRUVICA [Suspect]
     Active Substance: IBRUTINIB
     Indication: CHRONIC LYMPHOCYTIC LEUKAEMIA
     Route: 048
     Dates: start: 20150616, end: 20150901

REACTIONS (8)
  - Urticaria [Unknown]
  - White blood cell count abnormal [Unknown]
  - Joint swelling [Unknown]
  - Rectal haemorrhage [Unknown]
  - Sleep disorder [Unknown]
  - Skin lesion [Unknown]
  - Rash [Unknown]
  - Nausea [Unknown]

NARRATIVE: CASE EVENT DATE: 2015
